FAERS Safety Report 4803646-1 (Version None)
Quarter: 2005Q4

REPORT INFORMATION
  Report Type: 
  Country: None (occurrence: None)
  Receive Date: 20051014
  Receipt Date: 20051010
  Transmission Date: 20060501
  Serious: Yes (Death, Other)
  Sender: FDA-Public Use
  Company Number: 200513447GDS

PATIENT
  Age: 23 Year
  Sex: Male
  Weight: 70 kg

DRUGS (2)
  1. AVELOX [Suspect]
     Indication: PNEUMONIA PRIMARY ATYPICAL
     Dosage: 400 MG, QD, INTRAVENOUS
     Route: 042
     Dates: start: 20050908, end: 20050912
  2. INTRAVENOUS ANTIBIOTIC NOS [Concomitant]

REACTIONS (2)
  - ACUTE RESPIRATORY FAILURE [None]
  - SEPSIS [None]
